FAERS Safety Report 13973133 (Version 1)
Quarter: 2017Q3

REPORT INFORMATION
  Report Type: Other
  Country: US (occurrence: TR)
  Receive Date: 20170914
  Receipt Date: 20170914
  Transmission Date: 20171128
  Serious: Yes (Life-Threatening, Hospitalization)
  Sender: FDA-Public Use
  Company Number: 2017-ECIPHARMA-000002

PATIENT
  Age: 15 Year
  Sex: Female

DRUGS (1)
  1. VALPROIC ACID 750 MG/DAY [Suspect]
     Active Substance: VALPROIC ACID
     Indication: BIPOLAR I DISORDER
     Route: 048

REACTIONS (2)
  - Pulmonary eosinophilia [None]
  - Pleural effusion [Unknown]

NARRATIVE: CASE EVENT DATE: 20170717
